FAERS Safety Report 12397324 (Version 1)
Quarter: 2016Q2

REPORT INFORMATION
  Report Type: Spontaneous
  Country: US (occurrence: None)
  Receive Date: 20160523
  Receipt Date: 20160523
  Transmission Date: 20160815
  Serious: Yes (Other)
  Sender: FDA-Public Use
  Company Number: None

PATIENT
  Age: 60 Year
  Sex: Male
  Weight: 86.64 kg

DRUGS (5)
  1. TERBINAFINE, 250 MG [Suspect]
     Active Substance: TERBINAFINE
     Indication: ONYCHOMYCOSIS
     Dosage: 27 TABLET(S)  IN THE MORNING  TAKEN BY MOUTH
     Route: 048
     Dates: start: 20160425, end: 20160521
  2. AMLODIPINE BESYLATE. [Concomitant]
     Active Substance: AMLODIPINE BESYLATE
  3. ASPIRIN. [Concomitant]
     Active Substance: ASPIRIN
  4. LISINOPRIL. [Concomitant]
     Active Substance: LISINOPRIL
  5. VITAMIN D [Concomitant]
     Active Substance: CHOLECALCIFEROL

REACTIONS (11)
  - Neck pain [None]
  - Gait disturbance [None]
  - Ocular hyperaemia [None]
  - Pruritus [None]
  - Eyelid oedema [None]
  - Erythema [None]
  - Weight bearing difficulty [None]
  - Urticaria [None]
  - Back pain [None]
  - Myalgia [None]
  - Eyelid irritation [None]

NARRATIVE: CASE EVENT DATE: 20160505
